FAERS Safety Report 18750847 (Version 1)
Quarter: 2021Q1

REPORT INFORMATION
  Report Type: Report from Study
  Country: None (occurrence: CA)
  Receive Date: 20210118
  Receipt Date: 20210118
  Transmission Date: 20210419
  Serious: Yes (Other)
  Sender: FDA-Public Use
  Company Number: CA-ABBVIE-21K-028-3730813-00

PATIENT
  Sex: Female

DRUGS (1)
  1. SKYRIZI [Suspect]
     Active Substance: RISANKIZUMAB-RZAA
     Indication: PSORIASIS
     Route: 058
     Dates: start: 20200110

REACTIONS (4)
  - Fall [Recovered/Resolved]
  - Psoriasis [Recovered/Resolved]
  - Joint injury [Recovering/Resolving]
  - Scratch [Recovering/Resolving]

NARRATIVE: CASE EVENT DATE: 2020
